FAERS Safety Report 23242246 (Version 2)
Quarter: 2024Q1

REPORT INFORMATION
  Report Type: Spontaneous
  Country: PL (occurrence: PL)
  Receive Date: 20231129
  Receipt Date: 20240209
  Transmission Date: 20240410
  Serious: Yes (Hospitalization)
  Sender: FDA-Public Use
  Company Number: PL-MYLANLABS-2023M1116138

PATIENT
  Age: 65 Year
  Sex: Male

DRUGS (17)
  1. DULOXETINE [Suspect]
     Active Substance: DULOXETINE
     Indication: Product used for unknown indication
     Dosage: 30 MILLIGRAM, QD IN THE MORNING
     Route: 065
  2. GABAPENTIN [Suspect]
     Active Substance: GABAPENTIN
     Indication: Amputation stump pain
     Dosage: 100 MILLIGRAM, TID (100 MG THREE TIMES A DAY)
     Route: 065
  3. GABAPENTIN [Suspect]
     Active Substance: GABAPENTIN
     Indication: Pain
  4. MEPERIDINE [Suspect]
     Active Substance: MEPERIDINE
     Indication: Pain
     Dosage: 100 MILLIGRAM, A DOSE OF 100 MG INTRAMUSCULARLY IN THE EVENING
     Route: 030
     Dates: start: 2006
  5. AMITRIPTYLINE [Suspect]
     Active Substance: AMITRIPTYLINE
     Indication: Pain
     Dosage: 25 MILLIGRAM, QD (25 MG IN THE EVENING)
     Route: 065
  6. MIDAZOLAM [Suspect]
     Active Substance: MIDAZOLAM
     Indication: Product used for unknown indication
     Dosage: 2.5 MILLIGRAM, UNK
     Route: 065
  7. OXYCODONE [Suspect]
     Active Substance: OXYCODONE\OXYCODONE HYDROCHLORIDE
     Indication: Pain
     Dosage: 5 MILLIGRAM, QD (5 MG PER DAY IN THE EVENING)
     Route: 065
  8. OXYCODONE [Suspect]
     Active Substance: OXYCODONE\OXYCODONE HYDROCHLORIDE
     Dosage: 30 MILLIGRAM
     Route: 065
  9. OXYCODONE [Suspect]
     Active Substance: OXYCODONE\OXYCODONE HYDROCHLORIDE
     Dosage: 60 MILLIGRAM, QD (20 MG IN THE MORNING, 40 MG IN THE EVENING)
     Route: 065
  10. MORPHINE SULFATE [Suspect]
     Active Substance: MORPHINE SULFATE
     Indication: Pain
     Dosage: 20 MILLIGRAM, QD
     Route: 065
  11. HALOPERIDOL [Suspect]
     Active Substance: HALOPERIDOL
     Indication: Product used for unknown indication
     Dosage: 1.5 MILLIGRAM, QD
     Route: 048
  12. MORPHINE SULFATE [Suspect]
     Active Substance: MORPHINE SULFATE
     Indication: Pain
     Dosage: 30 MILLIGRAM, BID
     Route: 065
  13. MORPHINE SULFATE [Suspect]
     Active Substance: MORPHINE SULFATE
     Indication: Pain
     Dosage: 10 MILLIGRAM
     Route: 058
  14. MORPHINE SULFATE [Suspect]
     Active Substance: MORPHINE SULFATE
     Dosage: 40 MILLIGRAM
     Route: 058
  15. BUPRENORPHINE [Suspect]
     Active Substance: BUPRENORPHINE
     Indication: Pain
     Dosage: UNK
     Route: 062
  16. BUPRENORPHINE [Suspect]
     Active Substance: BUPRENORPHINE
     Indication: Pain in extremity
  17. FENTANYL [Suspect]
     Active Substance: FENTANYL\FENTANYL CITRATE
     Indication: Pain
     Dosage: UNK
     Route: 062

REACTIONS (5)
  - Nausea [Recovered/Resolved]
  - Vomiting [Unknown]
  - Drug ineffective [Unknown]
  - Somnolence [Unknown]
  - Pain [Unknown]
